FAERS Safety Report 14265991 (Version 5)
Quarter: 2018Q2

REPORT INFORMATION
  Report Type: Spontaneous
  Country: FR (occurrence: FR)
  Receive Date: 20171209
  Receipt Date: 20180620
  Transmission Date: 20180711
  Serious: Yes (Hospitalization, Other)
  Sender: FDA-Public Use
  Company Number: FR-AUROBINDO-AUR-APL-2017-44453

PATIENT
  Age: 63 Year
  Sex: Male

DRUGS (11)
  1. METHOTREXATE. [Suspect]
     Active Substance: METHOTREXATE
     Dosage: 20MG/WEEK ()
     Route: 065
  2. METHOTREXATE. [Suspect]
     Active Substance: METHOTREXATE
     Dosage: 20 MILLIGRAM
     Route: 065
  3. PREDNISONE. [Suspect]
     Active Substance: PREDNISONE
     Dosage: 7MG/DAY ()
     Route: 065
  4. CORTIVAZOL [Suspect]
     Active Substance: CORTIVAZOL
     Dosage: INJECTION, 120 (UNIT NOT REPORTED) ()
     Route: 065
  5. METHOTREXATE. [Suspect]
     Active Substance: METHOTREXATE
     Indication: RHEUMATOID ARTHRITIS
     Dosage: 20MG/WEEK
     Route: 065
  6. PREDNISONE. [Suspect]
     Active Substance: PREDNISONE
     Dosage: 7 MG, DAILY
     Route: 065
  7. PREDNISONE. [Suspect]
     Active Substance: PREDNISONE
     Dosage: DAILY DOSE: 7 MILLIGRAM
     Route: 065
  8. CORTIVAZOL [Suspect]
     Active Substance: CORTIVAZOL
     Dosage: ()
     Route: 065
  9. PREDNISONE. [Suspect]
     Active Substance: PREDNISONE
     Indication: RHEUMATOID ARTHRITIS
     Dosage: 7MG/DAY
     Route: 065
  10. CORTIVAZOL [Suspect]
     Active Substance: CORTIVAZOL
     Indication: TENOSYNOVITIS
     Route: 065
  11. CORTIVAZOL [Suspect]
     Active Substance: CORTIVAZOL
     Dosage: 120 UNK, UNK ()
     Route: 065

REACTIONS (2)
  - Tenosynovitis [Recovered/Resolved]
  - Phaehyphomycosis [Recovered/Resolved]
